FAERS Safety Report 5787242-8 (Version None)
Quarter: 2008Q2

REPORT INFORMATION
  Report Type: 
  Country: None (occurrence: None)
  Receive Date: 20080623
  Receipt Date: 20080623
  Transmission Date: 20081010
  Serious: Yes (Other)
  Sender: FDA-Public Use
  Company Number: None

PATIENT
  Sex: Female
  Weight: 79.8331 kg

DRUGS (4)
  1. CEFTRIAXONE [Suspect]
     Indication: PNEUMONIA
     Dosage: 1 GM ONCE IM
     Route: 030
     Dates: start: 20080222, end: 20080222
  2. SYNTHROID [Concomitant]
  3. PROMETHAZINE [Concomitant]
  4. OMNICEF [Concomitant]

REACTIONS (2)
  - HYPERSENSITIVITY [None]
  - RASH [None]
